FAERS Safety Report 9109104 (Version 1)
Quarter: 2013Q1

REPORT INFORMATION
  Report Type: Spontaneous
  Country: FR (occurrence: FR)
  Receive Date: 20130222
  Receipt Date: 20130222
  Transmission Date: 20140127
  Serious: Yes (Hospitalization)
  Sender: FDA-Public Use
  Company Number: FR-GLAXOSMITHKLINE-B0857756A

PATIENT
  Sex: Female

DRUGS (1)
  1. HYCAMTIN [Suspect]
     Indication: OVARIAN CANCER
     Route: 042
     Dates: start: 201208, end: 20121102

REACTIONS (4)
  - Eczema [Not Recovered/Not Resolved]
  - Pruritus [Not Recovered/Not Resolved]
  - Rash maculovesicular [Not Recovered/Not Resolved]
  - Skin lesion [Not Recovered/Not Resolved]
